FAERS Safety Report 7806063-5 (Version None)
Quarter: 2011Q4

REPORT INFORMATION
  Report Type: 
  Country: None (occurrence: None)
  Receive Date: 20111011
  Receipt Date: 20111003
  Transmission Date: 20120403
  Serious: Yes (Life-Threatening, Hospitalization, Other)
  Sender: FDA-Public Use
  Company Number: NL-GENZYME-CLOF-1001731

PATIENT
  Sex: Male
  Weight: 82 kg

DRUGS (5)
  1. CYTARABINE [Suspect]
     Indication: ACUTE MYELOID LEUKAEMIA
     Dosage: 410 MG, QD (DAY1-7)
     Route: 042
     Dates: start: 20110708, end: 20110714
  2. LASIX [Concomitant]
     Indication: PRODUCT USED FOR UNKNOWN INDICATION
     Dosage: 2 DD 20 MG
     Route: 065
     Dates: start: 20110730
  3. IDARUBICIN HCL [Suspect]
     Indication: ACUTE MYELOID LEUKAEMIA
     Dosage: 24 MG, UNK (DAY 1-3)
     Route: 042
     Dates: start: 20110708, end: 20110710
  4. EVOLTRA [Suspect]
     Indication: ACUTE MYELOID LEUKAEMIA
     Dosage: 20 MG; 2 DAYS (DAY 1-5)
     Route: 042
     Dates: start: 20110708, end: 20110709
  5. LASIX [Concomitant]
     Dosage: 40 MG, UNK
     Route: 042
     Dates: start: 20110730

REACTIONS (13)
  - CYTOKINE RELEASE SYNDROME [None]
  - CARDIAC FAILURE [None]
  - BACTERAEMIA [None]
  - PLEURAL EFFUSION [None]
  - BLOOD CREATININE INCREASED [None]
  - ASPARTATE AMINOTRANSFERASE INCREASED [None]
  - ALANINE AMINOTRANSFERASE INCREASED [None]
  - ASCITES [None]
  - CLOSTRIDIAL INFECTION [None]
  - BLOOD CREATINE PHOSPHOKINASE INCREASED [None]
  - RESPIRATORY FAILURE [None]
  - CAECITIS [None]
  - SINUS TACHYCARDIA [None]
